FAERS Safety Report 5741127-1 (Version None)
Quarter: 2008Q2

REPORT INFORMATION
  Report Type: 
  Country: None (occurrence: None)
  Receive Date: 20080514
  Receipt Date: 20080504
  Transmission Date: 20081010
  Serious: Yes (Other)
  Sender: FDA-Public Use
  Company Number: 2008011797

PATIENT
  Sex: Female

DRUGS (1)
  1. BENADRYL [Suspect]
     Indication: FOOD ALLERGY
     Dosage: INTRAVENOUS
     Route: 042

REACTIONS (3)
  - LOSS OF CONSCIOUSNESS [None]
  - PARALYSIS [None]
  - UNEVALUABLE EVENT [None]
